FAERS Safety Report 6297304-7 (Version None)
Quarter: 2009Q3

REPORT INFORMATION
  Report Type: 
  Country: None (occurrence: None)
  Receive Date: 20090805
  Receipt Date: 20090724
  Transmission Date: 20100115
  Serious: Yes (Life-Threatening)
  Sender: FDA-Public Use
  Company Number: JP-PFIZER INC-2009235648

PATIENT
  Age: 58 Year

DRUGS (12)
  1. SUNITINIB MALATE [Suspect]
     Indication: RENAL CELL CARCINOMA
     Dosage: 50 MG, 1X/DAY
     Route: 048
     Dates: start: 20081202, end: 20090414
  2. WARFARIN [Suspect]
     Route: 048
  3. GASTROM [Concomitant]
     Route: 048
  4. HYPEN [Concomitant]
     Route: 048
  5. SELBEX [Concomitant]
     Route: 048
  6. PREDONINE [Concomitant]
     Route: 048
  7. LASIX [Concomitant]
     Route: 048
  8. URINORM [Concomitant]
     Route: 048
  9. PARIET [Concomitant]
     Route: 048
  10. INDERAL [Concomitant]
     Route: 048
  11. NORVASC [Concomitant]
     Route: 048
  12. HARNAL [Concomitant]
     Route: 048

REACTIONS (1)
  - CEREBRAL HAEMORRHAGE [None]
